FAERS Safety Report 8394904-5 (Version None)
Quarter: 2012Q2

REPORT INFORMATION
  Report Type: 
  Country: None (occurrence: None)
  Receive Date: 20120530
  Receipt Date: 20110427
  Transmission Date: 20120825
  Serious: No
  Sender: FDA-Public Use
  Company Number: US-GLAXOSMITHKLINE-A0926117A

PATIENT
  Age: 49 Year
  Sex: Male
  Weight: 93.9 kg

DRUGS (1)
  1. FLOLAN [Suspect]
     Indication: PULMONARY ARTERIAL HYPERTENSION
     Dosage: 29NGKM UNKNOWN
     Route: 065
     Dates: start: 20100809

REACTIONS (4)
  - ARTHRALGIA [None]
  - PAIN IN JAW [None]
  - DIARRHOEA [None]
  - PAIN IN EXTREMITY [None]
